FAERS Safety Report 8099534-0 (Version None)
Quarter: 2012Q1

REPORT INFORMATION
  Report Type: 
  Country: None (occurrence: None)
  Receive Date: 20120129
  Receipt Date: 20110923
  Transmission Date: 20120608
  Serious: No
  Sender: FDA-Public Use
  Company Number: US-ABBOTT-11P-163-0858150-00

PATIENT
  Sex: Female
  Weight: 83.99 kg

DRUGS (3)
  1. HUMIRA [Suspect]
     Indication: PSORIASIS
     Route: 058
     Dates: start: 20090101
  2. SPIRALACTONE [Concomitant]
     Indication: SWELLING
  3. ALLOPURINOL [Concomitant]
     Indication: GOUT

REACTIONS (1)
  - INJECTION SITE PAIN [None]
